FAERS Safety Report 22835698 (Version 3)
Quarter: 2024Q1

REPORT INFORMATION
  Report Type: Other
  Country: JP (occurrence: JP)
  Receive Date: 20230818
  Receipt Date: 20240326
  Transmission Date: 20240410
  Serious: Yes (Hospitalization)
  Sender: FDA-Public Use
  Company Number: JP-CHUGAI-2021022163

PATIENT
  Age: 71 Year
  Sex: Female
  Weight: 41 kg

DRUGS (8)
  1. ENSPRYNG [Suspect]
     Active Substance: SATRALIZUMAB-MWGE
     Indication: Neuromyelitis optica spectrum disorder
     Route: 058
     Dates: start: 20210303, end: 20210331
  2. ENSPRYNG [Suspect]
     Active Substance: SATRALIZUMAB-MWGE
     Route: 058
     Dates: start: 20210428
  3. ENSPRYNG [Suspect]
     Active Substance: SATRALIZUMAB-MWGE
     Route: 058
     Dates: start: 20210904
  4. PREDONINE [Suspect]
     Active Substance: PREDNISOLONE
     Indication: Neuromyelitis optica spectrum disorder
     Dosage: PER DAY
     Route: 048
     Dates: start: 20210303
  5. PREDONINE [Suspect]
     Active Substance: PREDNISOLONE
     Dosage: PER DAY
     Route: 048
     Dates: end: 20210903
  6. PREDONINE [Suspect]
     Active Substance: PREDNISOLONE
     Route: 065
     Dates: start: 20210904
  7. PREDONINE [Suspect]
     Active Substance: PREDNISOLONE
     Route: 065
  8. PREDONINE [Suspect]
     Active Substance: PREDNISOLONE
     Route: 065

REACTIONS (2)
  - Pneumonia [Recovered/Resolved]
  - Herpes zoster [Recovered/Resolved]

NARRATIVE: CASE EVENT DATE: 20210724
